FAERS Safety Report 18483052 (Version 1)
Quarter: 2020Q4

REPORT INFORMATION
  Report Type: Spontaneous
  Country: CH (occurrence: CH)
  Receive Date: 20201110
  Receipt Date: 20201110
  Transmission Date: 20210114
  Serious: Yes (Other)
  Sender: FDA-Public Use
  Company Number: CH-TEVA-2020-CH-1847410

PATIENT
  Age: 71 Year
  Sex: Female

DRUGS (3)
  1. XGEVA [Concomitant]
     Active Substance: DENOSUMAB
     Dosage: QUARTERLY. DOSAGE UNKNOWN. EXACT DATE OF TREATMENT INITIATION UNKNOWN.
     Route: 058
     Dates: start: 201812
  2. PACLITAXEL TEVA [Suspect]
     Active Substance: PACLITAXEL
     Dosage: EXACT DATE OF TREATMENT INITIATION UNKNOWN. ADMINISTRATION OF 1 X 100 MG VIAL AND 2 X 30 MG VIALS...
     Route: 041
     Dates: start: 202010, end: 202010
  3. PACLITAXEL TEVA [Suspect]
     Active Substance: PACLITAXEL
     Dosage: EXACT DATE OF TREATMENT INITIATION UNKNOWN. ADMINISTRATION OF 1 X 100 MG VIAL AND 2 X 30 MG VIALS...
     Route: 041
     Dates: start: 202010, end: 202010

REACTIONS (6)
  - Hypertension [Unknown]
  - Dyspnoea [Unknown]
  - Angioedema [Unknown]
  - Hypersensitivity [Unknown]
  - Tachycardia [Unknown]
  - Oxygen saturation decreased [Unknown]

NARRATIVE: CASE EVENT DATE: 202010
